FAERS Safety Report 4474988-7 (Version None)
Quarter: 2004Q3

REPORT INFORMATION
  Report Type: 
  Country: None (occurrence: None)
  Receive Date: 20040923
  Receipt Date: 20040625
  Transmission Date: 20050211
  Serious: No
  Sender: FDA-Public Use
  Company Number: USA040671226

PATIENT
  Age: 71 Year
  Sex: Female

DRUGS (8)
  1. FORTEO [Suspect]
     Indication: OSTEOPOROSIS
     Dates: start: 20040301
  2. FLUOXETINE [Concomitant]
  3. SYNTHROID [Concomitant]
  4. FOLIC ACID [Concomitant]
  5. LANOXIN [Concomitant]
  6. CARDIZEM [Concomitant]
  7. PRILOSEC [Concomitant]
  8. SPIRONOLACTONE [Concomitant]

REACTIONS (6)
  - ASTHENIA [None]
  - BRONCHITIS [None]
  - DECREASED ACTIVITY [None]
  - FATIGUE [None]
  - MUSCLE CRAMP [None]
  - SYSTEMIC LUPUS ERYTHEMATOSUS [None]
